FAERS Safety Report 11394422 (Version 1)
Quarter: 2015Q3

REPORT INFORMATION
  Report Type: Spontaneous
  Country: CA (occurrence: None)
  Receive Date: 20150817
  Receipt Date: 20150817
  Transmission Date: 20151125
  Serious: Yes (Other)
  Sender: FDA-Public Use
  Company Number: KAD201508-002673

PATIENT
  Age: 55 Year
  Sex: Female
  Weight: 95.71 kg

DRUGS (6)
  1. OXYCODONE (OXYCODONE) (OXYCODONE) [Concomitant]
     Active Substance: OXYCODONE
  2. PANTOPRAZOLE (PANTOPRAZOLE SODIUM SESQUIHYDRATE) (PANTOPRAZOLE SODIUM SESQUIHYDRATE) [Concomitant]
  3. PROZAC [Concomitant]
     Active Substance: FLUOXETINE HYDROCHLORIDE
  4. RIBAVIRIN 600 MG TABLETS (RIBAVIRIN) [Suspect]
     Active Substance: RIBAVIRIN
     Indication: HEPATITIS C
     Dosage: IN AM AND PM
     Route: 048
     Dates: start: 20150711
  5. HOLKIRA PAK (OMBITASVIR, PARITAPREVIR, RITONAVIR, DASABUVIR) [Suspect]
     Active Substance: DASABUVIR\OMBITASVIR\PARITAPREVIR\RITONAVIR
     Indication: HEPATITIS C
     Route: 048
     Dates: start: 20150711
  6. SYNTHROID (LEVOTHYROXINE SODIUM) (LEVOTHYROXINE SODIUM) [Concomitant]

REACTIONS (6)
  - Oedema due to hepatic disease [None]
  - Local swelling [None]
  - Nausea [None]
  - Ascites [None]
  - Joint stiffness [None]
  - Malaise [None]

NARRATIVE: CASE EVENT DATE: 20150731
